FAERS Safety Report 10191829 (Version 1)
Quarter: 2014Q2

REPORT INFORMATION
  Report Type: Spontaneous
  Country: JP (occurrence: JP)
  Receive Date: 20140523
  Receipt Date: 20140523
  Transmission Date: 20141212
  Serious: Yes (Other)
  Sender: FDA-Public Use
  Company Number: JP-ASTELLAS-2014JP006826

PATIENT
  Age: 53 Year
  Sex: Female

DRUGS (14)
  1. FUNGUARD [Suspect]
     Indication: BRONCHOPULMONARY ASPERGILLOSIS
     Dosage: UNK, UNKNOWN FREQ.
  2. ALLOPURINOL [Suspect]
     Indication: PROPHYLAXIS
     Dosage: UNK, UNKNOWN FREQ.
     Route: 065
  3. VANCOMYCIN HYDROCHLORIDE [Suspect]
     Indication: BRONCHOPULMONARY ASPERGILLOSIS
     Dosage: UNK, UNKNOWN FREQ.
     Route: 065
  4. VANCOMYCIN HYDROCHLORIDE [Suspect]
     Indication: SEPSIS
  5. TOSUFLOXACIN TOSILATE [Suspect]
     Indication: BRONCHOPULMONARY ASPERGILLOSIS
     Dosage: UNK, UNKNOWN FREQ.
     Route: 065
  6. TOSUFLOXACIN TOSILATE [Suspect]
     Indication: SEPSIS
  7. CEFEPIME HYDROCHLORIDE [Suspect]
     Indication: BRONCHOPULMONARY ASPERGILLOSIS
     Dosage: UNK, UNKNOWN FREQ.
     Route: 065
  8. CEFEPIME HYDROCHLORIDE [Suspect]
     Indication: SEPSIS
  9. MEROPENEM TRIHYDRATE [Suspect]
     Indication: BRONCHOPULMONARY ASPERGILLOSIS
     Dosage: UNK, UNKNOWN FREQ.
     Route: 065
  10. MEROPENEM TRIHYDRATE [Suspect]
     Indication: SEPSIS
  11. FLUCONAZOLE [Suspect]
     Indication: BRONCHOPULMONARY ASPERGILLOSIS
     Dosage: UNK, UNKNOWN FREQ.
     Route: 065
  12. FLUCONAZOLE [Suspect]
     Indication: SEPSIS
  13. IDAMYCIN [Concomitant]
     Indication: ACUTE MYELOMONOCYTIC LEUKAEMIA
     Dosage: UNK UNK, UNKNOWN FREQ.
     Route: 065
  14. CYTARABINE [Concomitant]
     Indication: ACUTE MYELOMONOCYTIC LEUKAEMIA
     Dosage: UNK UNK, UNKNOWN FREQ.
     Route: 065

REACTIONS (1)
  - Drug reaction with eosinophilia and systemic symptoms [Recovering/Resolving]
